FAERS Safety Report 7013035-X (Version None)
Quarter: 2010Q3

REPORT INFORMATION
  Report Type: 
  Country: None (occurrence: None)
  Receive Date: 20100924
  Receipt Date: 20100914
  Transmission Date: 20110219
  Serious: Yes (Other)
  Sender: FDA-Public Use
  Company Number: US-PFIZER INC-2010116648

PATIENT
  Sex: Female

DRUGS (13)
  1. NEURONTIN [Suspect]
     Dosage: UNK
  2. LITHIUM CARBONATE [Interacting]
     Dosage: UNK
  3. EFFEXOR XR [Interacting]
     Dosage: UNK
  4. TRAMADOL [Interacting]
     Dosage: UNK
  5. LEVOTHROID [Interacting]
     Dosage: UNK
  6. ABILIFY [Interacting]
     Dosage: UNK
  7. NEXIUM [Interacting]
     Dosage: UNK
  8. BUSPAR [Interacting]
     Dosage: UNK
  9. SEROQUEL [Interacting]
     Dosage: UNK
  10. MONTELUKAST [Interacting]
     Dosage: UNK
  11. ATROVENT [Interacting]
     Dosage: UNK
  12. FLOVENT [Interacting]
     Dosage: UNK
  13. FLEXERIL [Interacting]
     Dosage: UNK

REACTIONS (2)
  - DRUG INTERACTION [None]
  - HYPOTHYROIDISM [None]
